FAERS Safety Report 12553746 (Version 1)
Quarter: 2016Q3

REPORT INFORMATION
  Report Type: Spontaneous
  Country: US (occurrence: US)
  Receive Date: 20160713
  Receipt Date: 20160713
  Transmission Date: 20161109
  Serious: No
  Sender: FDA-Public Use
  Company Number: US-NOVOPROD-497480

PATIENT
  Age: 58 Year
  Sex: Female

DRUGS (2)
  1. SAXENDA [Suspect]
     Active Substance: LIRAGLUTIDE
     Indication: OVERWEIGHT
     Dosage: 0.6 MG, QD
     Route: 058
     Dates: start: 20160530, end: 20160604
  2. SAXENDA [Suspect]
     Active Substance: LIRAGLUTIDE
     Indication: HYPERTENSION

REACTIONS (2)
  - Blood glucose decreased [Recovered/Resolved]
  - Decreased appetite [Unknown]

NARRATIVE: CASE EVENT DATE: 20160530
